FAERS Safety Report 17859362 (Version 1)
Quarter: 2020Q2

REPORT INFORMATION
  Report Type: Spontaneous
  Country: JP (occurrence: JP)
  Receive Date: 20200604
  Receipt Date: 20200604
  Transmission Date: 20200714
  Serious: Yes (Other)
  Sender: FDA-Public Use
  Company Number: NVSJ2020JP005481

PATIENT
  Age: 87 Year
  Sex: Male

DRUGS (1)
  1. ZOMETA [Suspect]
     Active Substance: ZOLEDRONIC ACID
     Indication: PRODUCT USED FOR UNKNOWN INDICATION
     Dosage: UNK MG
     Route: 041
     Dates: start: 201201

REACTIONS (2)
  - Osteomyelitis [Unknown]
  - Osteonecrosis of jaw [Unknown]
